FAERS Safety Report 23323237 (Version 1)
Quarter: 2023Q4

REPORT INFORMATION
  Report Type: Other
  Country: US (occurrence: None)
  Receive Date: 20231220
  Receipt Date: 20231220
  Transmission Date: 20240110
  Serious: Yes (Hospitalization)
  Sender: FDA-Public Use
  Company Number: US-ROCHE-3337636

PATIENT
  Age: 60 Year
  Sex: Female

DRUGS (12)
  1. RITUXIMAB [Suspect]
     Active Substance: RITUXIMAB
     Indication: Prophylaxis against transplant rejection
     Route: 065
  2. TACROLIMUS [Suspect]
     Active Substance: TACROLIMUS
     Indication: Prophylaxis against transplant rejection
     Route: 065
  3. MYCOPHENOLATE MOFETIL [Suspect]
     Active Substance: MYCOPHENOLATE MOFETIL
     Indication: Prophylaxis against transplant rejection
     Route: 065
  4. ALEMTUZUMAB [Suspect]
     Active Substance: ALEMTUZUMAB
     Indication: Prophylaxis against transplant rejection
     Route: 065
  5. PREDNISONE [Concomitant]
     Active Substance: PREDNISONE
  6. VALGANCICLOVIR [Concomitant]
     Active Substance: VALGANCICLOVIR
  7. ASPIRIN [Concomitant]
     Active Substance: ASPIRIN
  8. HYDROXYUREA [Concomitant]
     Active Substance: HYDROXYUREA
  9. FAMOTIDINE [Concomitant]
     Active Substance: FAMOTIDINE
  10. CLONAZEPAM [Concomitant]
     Active Substance: CLONAZEPAM
  11. CYCLOSPORINE [Concomitant]
     Active Substance: CYCLOSPORINE
  12. BELATACEPT [Concomitant]
     Active Substance: BELATACEPT

REACTIONS (3)
  - Clostridium difficile infection [Unknown]
  - Urinary tract infection enterococcal [Unknown]
  - Encephalitis [Unknown]
